FAERS Safety Report 6300924-4 (Version None)
Quarter: 2009Q3

REPORT INFORMATION
  Report Type: 
  Country: None (occurrence: None)
  Receive Date: 20090807
  Receipt Date: 20090731
  Transmission Date: 20100115
  Serious: Yes (Hospitalization)
  Sender: FDA-Public Use
  Company Number: JP-JNJFOC-20090709949

PATIENT
  Sex: Male
  Weight: 45 kg

DRUGS (15)
  1. FENTANYL [Suspect]
     Route: 062
  2. FENTANYL [Suspect]
     Route: 062
  3. FENTANYL [Suspect]
     Indication: PAIN
     Route: 062
  4. TAKEPRON [Concomitant]
     Indication: ABDOMINAL DISCOMFORT
     Route: 048
  5. PURSENNID [Concomitant]
     Indication: CONSTIPATION
     Route: 048
  6. MAGMITT [Concomitant]
     Indication: CONSTIPATION
     Route: 048
  7. NOVAMIN [Concomitant]
     Indication: NAUSEA
     Route: 048
  8. INTEBAN [Concomitant]
     Dosage: DOSE UNSPECIFIED (Q.S: AS MUCH AS SUFFICIENT)
     Route: 003
  9. CRAVIT [Concomitant]
     Indication: PNEUMONIA
     Route: 048
  10. AVELOX [Concomitant]
     Indication: PNEUMONIA
     Route: 048
  11. MUCODYNE [Concomitant]
     Indication: PNEUMONIA
     Route: 048
  12. LOXONIN [Concomitant]
     Indication: PYREXIA
     Route: 048
  13. MUCOSTA [Concomitant]
     Indication: GASTRITIS PROPHYLAXIS
     Route: 048
  14. ALFAROL [Concomitant]
     Indication: OSTEOPOROSIS
     Route: 048
  15. GLAKAY [Concomitant]
     Indication: OSTEOPOROSIS
     Route: 048

REACTIONS (1)
  - PNEUMONIA [None]
